FAERS Safety Report 11474521 (Version 1)
Quarter: 2015Q3

REPORT INFORMATION
  Report Type: Spontaneous
  Country: US (occurrence: US)
  Receive Date: 20150908
  Receipt Date: 20150908
  Transmission Date: 20151125
  Serious: No
  Sender: FDA-Public Use
  Company Number: US-JAZZ-2014-US-006177

PATIENT
  Age: 60 Year
  Sex: Male
  Weight: 63.49 kg

DRUGS (7)
  1. XYREM [Suspect]
     Active Substance: SODIUM OXYBATE
     Dosage: 4 G, FIRST DOSE
     Route: 048
     Dates: start: 201406
  2. XYREM [Suspect]
     Active Substance: SODIUM OXYBATE
     Dosage: DOSE ADJUSTMENTS
     Route: 048
  3. SERTRALINE [Concomitant]
     Active Substance: SERTRALINE HYDROCHLORIDE
     Indication: DEPRESSION
     Dosage: 200 MG, QD
     Route: 048
  4. XYREM [Suspect]
     Active Substance: SODIUM OXYBATE
     Dosage: 3 G, SECOND DOSE
     Route: 048
     Dates: start: 201406
  5. FLOMAX [Suspect]
     Active Substance: TAMSULOSIN HYDROCHLORIDE
     Indication: PROSTATITIS
  6. FLOMAX [Suspect]
     Active Substance: TAMSULOSIN HYDROCHLORIDE
     Indication: POLLAKIURIA
     Dosage: UNKNOWN DOSE
     Route: 048
     Dates: start: 201311, end: 2014
  7. XYREM [Suspect]
     Active Substance: SODIUM OXYBATE
     Indication: HYPERSOMNIA
     Dosage: 2.25 G, BID
     Route: 048
     Dates: start: 200711, end: 2007

REACTIONS (5)
  - Orthostatic hypotension [Recovered/Resolved]
  - Laceration [Unknown]
  - Fall [Recovered/Resolved]
  - Off label use [Unknown]
  - Head injury [Unknown]

NARRATIVE: CASE EVENT DATE: 200711
